FAERS Safety Report 5922296-7 (Version None)
Quarter: 2008Q4

REPORT INFORMATION
  Report Type: 
  Country: None (occurrence: None)
  Receive Date: 20081017
  Receipt Date: 20081007
  Transmission Date: 20090506
  Serious: Yes (Other)
  Sender: FDA-Public Use
  Company Number: US-WATSON-2008-05174

PATIENT
  Age: 62 Year
  Sex: Female

DRUGS (2)
  1. FENTANYL-100 [Suspect]
     Indication: PAIN
     Dosage: UNK
     Route: 062
     Dates: end: 20081003
  2. UNKNOWN MEDICATIONS [Suspect]
     Indication: DRUG USE FOR UNKNOWN INDICATION
     Dosage: UNK
     Route: 065

REACTIONS (9)
  - APPLICATION SITE PRURITUS [None]
  - EUPHORIC MOOD [None]
  - FALL [None]
  - FATIGUE [None]
  - INCOHERENT [None]
  - INTENTIONAL DRUG MISUSE [None]
  - LIMB INJURY [None]
  - LOSS OF CONSCIOUSNESS [None]
  - MALAISE [None]
